FAERS Safety Report 20929771 (Version 1)
Quarter: 2022Q2

REPORT INFORMATION
  Report Type: Spontaneous
  Country: US (occurrence: US)
  Receive Date: 20220608
  Receipt Date: 20220608
  Transmission Date: 20220720
  Serious: No
  Sender: FDA-Public Use
  Company Number: US-PERRIGO-22US004429

PATIENT
  Sex: Male

DRUGS (1)
  1. MINOXIDIL [Suspect]
     Active Substance: MINOXIDIL
     Indication: Product used for unknown indication
     Dosage: UNK, UNK
     Dates: start: 202203

REACTIONS (3)
  - Application site dryness [Unknown]
  - Dandruff [Unknown]
  - Application site pruritus [Unknown]

NARRATIVE: CASE EVENT DATE: 20220301
